FAERS Safety Report 15352602 (Version 1)
Quarter: 2018Q3

REPORT INFORMATION
  Report Type: Spontaneous
  Country: CH (occurrence: CH)
  Receive Date: 20180905
  Receipt Date: 20180905
  Transmission Date: 20181010
  Serious: Yes (Other)
  Sender: FDA-Public Use
  Company Number: CH-SA-2018SA241138

PATIENT
  Age: 85 Year
  Sex: Female

DRUGS (15)
  1. PYRAZINAMIDE. [Suspect]
     Active Substance: PYRAZINAMIDE
     Indication: TUBERCULOSIS
     Dosage: 1500 UNK
  2. RIFAMPICIN [Suspect]
     Active Substance: RIFAMPIN
     Indication: SACROILIITIS
     Dosage: 240 MG
  3. RIFAMPICIN [Suspect]
     Active Substance: RIFAMPIN
     Indication: TUBERCULOSIS
     Dosage: 600 UNK
  4. LEVOTHYROXINE. [Concomitant]
     Active Substance: LEVOTHYROXINE
  5. ISONIAZID. [Suspect]
     Active Substance: ISONIAZID
     Indication: SACROILIITIS
     Dosage: 100 MG
  6. VALSARTAN. [Concomitant]
     Active Substance: VALSARTAN
  7. CICLESONIDE [Concomitant]
     Active Substance: CICLESONIDE
     Route: 048
  8. ETHAMBUTOL [Suspect]
     Active Substance: ETHAMBUTOL HYDROCHLORIDE
     Indication: TUBERCULOSIS
     Dosage: 1000 UNK
  9. PYRAZINAMIDE. [Suspect]
     Active Substance: PYRAZINAMIDE
     Indication: PSOAS ABSCESS
  10. ISONIAZID. [Suspect]
     Active Substance: ISONIAZID
     Indication: PSOAS ABSCESS
  11. ETHAMBUTOL [Suspect]
     Active Substance: ETHAMBUTOL HYDROCHLORIDE
     Indication: SACROILIITIS
     Dosage: 400 MG
  12. ETHAMBUTOL [Suspect]
     Active Substance: ETHAMBUTOL HYDROCHLORIDE
     Indication: PSOAS ABSCESS
  13. RIFAMPICIN [Suspect]
     Active Substance: RIFAMPIN
     Indication: PSOAS ABSCESS
  14. PYRAZINAMIDE. [Suspect]
     Active Substance: PYRAZINAMIDE
     Indication: SACROILIITIS
     Dosage: 600 MG
  15. ISONIAZID. [Suspect]
     Active Substance: ISONIAZID
     Indication: TUBERCULOSIS
     Dosage: 250 UNK

REACTIONS (1)
  - Delirium [Recovered/Resolved]
